FAERS Safety Report 25440346 (Version 2)
Quarter: 2025Q3

REPORT INFORMATION
  Report Type: Spontaneous
  Country: US (occurrence: US)
  Receive Date: 20250616
  Receipt Date: 20250915
  Transmission Date: 20251020
  Serious: No
  Sender: SANOFI AVENTIS
  Company Number: US-SA-2025SA169441

PATIENT
  Age: 27 Year
  Sex: Female

DRUGS (1)
  1. DUPIXENT [Suspect]
     Active Substance: DUPILUMAB
     Indication: Nasal polyps
     Dosage: 300 MG, QOW
     Route: 058
     Dates: start: 20250430

REACTIONS (6)
  - Nasal congestion [Recovering/Resolving]
  - Condition aggravated [Recovering/Resolving]
  - Rhinorrhoea [Recovering/Resolving]
  - Injection site pain [Recovered/Resolved]
  - Nasopharyngitis [Recovering/Resolving]
  - Condition aggravated [Recovering/Resolving]

NARRATIVE: CASE EVENT DATE: 20250528
